FAERS Safety Report 9780394 (Version 53)
Quarter: 2016Q4

REPORT INFORMATION
  Report Type: Report from Study
  Country: CA (occurrence: CA)
  Receive Date: 20131224
  Receipt Date: 20161103
  Transmission Date: 20170207
  Serious: Yes (Hospitalization, Other)
  Sender: FDA-Public Use
  Company Number: CA-ROCHE-1122188

PATIENT
  Age: 62 Year
  Sex: Female
  Weight: 122 kg

DRUGS (14)
  1. PANTOPRAZOLE [Interacting]
     Active Substance: PANTOPRAZOLE SODIUM
     Indication: PRODUCT USED FOR UNKNOWN INDICATION
     Dosage: DISCONTINUED
     Route: 065
  2. FISH OIL [Concomitant]
     Active Substance: FISH OIL
  3. VITAMIN B COMPLEX [Concomitant]
     Active Substance: CYANOCOBALAMIN\DEXPANTHENOL\NIACINAMIDE\PYRIDOXINE HYDROCHLORIDE\RIBOFLAVIN 5^-PHOSPHATE SODIUM\THIAMINE HYDROCHLORIDE\VITAMIN B COMPLEX
  4. IBUPROFEN. [Concomitant]
     Active Substance: IBUPROFEN
     Route: 065
  5. ACTEMRA [Suspect]
     Active Substance: TOCILIZUMAB
     Indication: RHEUMATOID ARTHRITIS
     Dosage: LAST INFUSION ON 29/JUL/2015
     Route: 042
     Dates: start: 20111114
  6. CELEBREX [Suspect]
     Active Substance: CELECOXIB
     Indication: PRODUCT USED FOR UNKNOWN INDICATION
     Route: 065
  7. VITAMIN C [Concomitant]
     Active Substance: ASCORBIC ACID
  8. PLAQUENIL [Concomitant]
     Active Substance: HYDROXYCHLOROQUINE SULFATE
  9. METHOTREXATE. [Interacting]
     Active Substance: METHOTREXATE
     Indication: PRODUCT USED FOR UNKNOWN INDICATION
     Route: 065
  10. SOLU-MEDROL [Concomitant]
     Active Substance: METHYLPREDNISOLONE SODIUM SUCCINATE
     Indication: PREMEDICATION
     Route: 065
     Dates: start: 20110510, end: 20110510
  11. FOLIC ACID. [Concomitant]
     Active Substance: FOLIC ACID
  12. BENADRYL [Concomitant]
     Active Substance: DIPHENHYDRAMINE HYDROCHLORIDE
     Indication: PREMEDICATION
     Route: 048
     Dates: start: 20110510, end: 20110510
  13. RITUXAN [Suspect]
     Active Substance: RITUXIMAB
     Indication: RHEUMATOID ARTHRITIS
     Route: 042
     Dates: start: 20110510, end: 20110510
  14. TYLENOL [Concomitant]
     Active Substance: ACETAMINOPHEN
     Indication: PREMEDICATION
     Route: 065
     Dates: start: 20110510, end: 20110510

REACTIONS (42)
  - Ovarian cyst [Unknown]
  - Body temperature decreased [Unknown]
  - Human papilloma virus test positive [Not Recovered/Not Resolved]
  - Weight increased [Recovering/Resolving]
  - Hepatic enzyme increased [Unknown]
  - Skin fissures [Not Recovered/Not Resolved]
  - Weight decreased [Unknown]
  - Drug interaction [Unknown]
  - Nausea [Unknown]
  - Nasopharyngitis [Not Recovered/Not Resolved]
  - Fungal infection [Recovering/Resolving]
  - Gait disturbance [Recovering/Resolving]
  - Rhinorrhoea [Unknown]
  - Musculoskeletal stiffness [Not Recovered/Not Resolved]
  - Blood pressure increased [Unknown]
  - Oral pain [Recovering/Resolving]
  - Ulcer [Recovered/Resolved]
  - Wound [Not Recovered/Not Resolved]
  - Rheumatoid arthritis [Recovering/Resolving]
  - Productive cough [Not Recovered/Not Resolved]
  - Stomatitis [Recovered/Resolved]
  - Malaise [Unknown]
  - Tinnitus [Not Recovered/Not Resolved]
  - Migraine [Recovered/Resolved]
  - Drug ineffective [Unknown]
  - Upper respiratory tract infection [Unknown]
  - Infection [Recovering/Resolving]
  - Back injury [Recovered/Resolved]
  - Blood pressure increased [Unknown]
  - Benign ovarian tumour [Recovered/Resolved]
  - Pain [Not Recovered/Not Resolved]
  - Oral herpes [Not Recovered/Not Resolved]
  - Abdominal discomfort [Recovered/Resolved]
  - Sneezing [Not Recovered/Not Resolved]
  - Influenza [Unknown]
  - Benign neoplasm [Recovered/Resolved]
  - Chills [Unknown]
  - Nausea [Recovering/Resolving]
  - Infusion related reaction [Unknown]
  - Oxygen saturation decreased [Unknown]
  - Oral herpes [Recovered/Resolved]
  - Oropharyngeal pain [Not Recovered/Not Resolved]

NARRATIVE: CASE EVENT DATE: 2012
